FAERS Safety Report 24600953 (Version 2)
Quarter: 2024Q4

REPORT INFORMATION
  Report Type: Spontaneous
  Country: US (occurrence: US)
  Receive Date: 20241110
  Receipt Date: 20241227
  Transmission Date: 20250114
  Serious: No
  Sender: BAUSCH AND LOMB
  Company Number: US-BAUSCHBL-2024BNL036703

PATIENT
  Age: 89 Year
  Sex: Female

DRUGS (2)
  1. XIIDRA [Suspect]
     Active Substance: LIFITEGRAST
     Indication: Product used for unknown indication
     Route: 047
  2. IVIZIA DRY EYE [Suspect]
     Active Substance: POVIDONE
     Indication: Product used for unknown indication
     Route: 065

REACTIONS (9)
  - Ocular hyperaemia [Recovered/Resolved]
  - Visual impairment [Unknown]
  - Periorbital swelling [Unknown]
  - Vision blurred [Unknown]
  - Product dose omission in error [Unknown]
  - Product use complaint [Unknown]
  - Product delivery mechanism issue [Unknown]
  - Circumstance or information capable of leading to medication error [Unknown]
  - Incorrect dose administered [Unknown]
